FAERS Safety Report 10226817 (Version 2)
Quarter: 2014Q2

REPORT INFORMATION
  Report Type: Report from Study
  Country: FI (occurrence: FI)
  Receive Date: 20140610
  Receipt Date: 20140620
  Transmission Date: 20141212
  Serious: Yes (Hospitalization)
  Sender: FDA-Public Use
  Company Number: FI-BIOGENIDEC-2014BI049849

PATIENT
  Age: 55 Year
  Sex: Female
  Weight: 71 kg

DRUGS (16)
  1. BLINDED THERAPY [Suspect]
     Indication: SECONDARY PROGRESSIVE MULTIPLE SCLEROSIS
     Route: 042
     Dates: start: 20120315
  2. SPASMOLYT PLUS [Concomitant]
     Indication: BLADDER DYSFUNCTION
     Route: 048
     Dates: start: 20120116
  3. DIPROSALIC [Concomitant]
     Indication: PRURITUS
     Route: 061
     Dates: start: 20120116
  4. MIRTAZAPINE [Concomitant]
     Indication: DEPRESSION
     Route: 048
     Dates: start: 20071201
  5. SIRDALUD DEPOT [Concomitant]
     Indication: MUSCLE SPASTICITY
     Route: 048
     Dates: start: 20130604
  6. SIRDALUD DEPOT [Concomitant]
     Indication: MUSCLE SPASTICITY
     Route: 048
     Dates: start: 20140521, end: 20140521
  7. IMOVANE [Concomitant]
     Indication: INSOMNIA
     Route: 048
     Dates: start: 20031001
  8. LAXOBERON [Concomitant]
     Indication: CONSTIPATION
     Route: 048
     Dates: start: 20120315
  9. BACLOFEN [Concomitant]
     Indication: MUSCLE SPASTICITY
     Route: 048
     Dates: start: 20120812
  10. BACLOFEN [Concomitant]
     Indication: MUSCLE SPASTICITY
     Route: 048
     Dates: start: 20140316
  11. OPAMOX [Concomitant]
     Indication: DEPRESSION
     Route: 048
     Dates: start: 20121105
  12. NORGESIC [Concomitant]
     Indication: BACK PAIN
     Route: 048
     Dates: start: 2012
  13. NITROFURANTOIN [Concomitant]
     Indication: PROPHYLAXIS URINARY TRACT INFECTION
     Route: 048
     Dates: start: 20140426
  14. VAGIFEM [Concomitant]
     Indication: MENOPAUSAL SYMPTOMS
     Route: 067
     Dates: start: 20140404
  15. RIVATRIL [Concomitant]
     Indication: MUSCLE SPASTICITY
     Route: 048
     Dates: start: 2014
  16. BURANA [Concomitant]
     Indication: BACK PAIN
     Route: 048
     Dates: start: 20120604

REACTIONS (1)
  - Paronychia [Not Recovered/Not Resolved]
